FAERS Safety Report 15681420 (Version 3)
Quarter: 2018Q4

REPORT INFORMATION
  Report Type: Report from Study
  Country: FR (occurrence: FR)
  Receive Date: 20181203
  Receipt Date: 20181226
  Transmission Date: 20190205
  Serious: Yes (Other)
  Sender: FDA-Public Use
  Company Number: FR-GLAXOSMITHKLINE-FR2018GSK196880

PATIENT
  Age: 66 Year
  Sex: Male

DRUGS (1)
  1. MEPOLIZUMAB [Suspect]
     Active Substance: MEPOLIZUMAB
     Indication: ASTHMA
     Dosage: 1 UNK, Z
     Route: 042
     Dates: start: 20160107, end: 20160107

REACTIONS (9)
  - Headache [Unknown]
  - Abdominal pain [Unknown]
  - Chest discomfort [Unknown]
  - Multiple chemical sensitivity [Unknown]
  - Dizziness [Unknown]
  - Muscle spasms [Unknown]
  - Monoplegia [Unknown]
  - Malaise [Unknown]
  - Chest pain [Unknown]

NARRATIVE: CASE EVENT DATE: 20160107
